FAERS Safety Report 13268234 (Version 2)
Quarter: 2017Q2

REPORT INFORMATION
  Report Type: Spontaneous
  Country: JP (occurrence: JP)
  Receive Date: 20170224
  Receipt Date: 20170414
  Transmission Date: 20170830
  Serious: Yes (Hospitalization, Other)
  Sender: FDA-Public Use
  Company Number: JP-009507513-1702JPN001524J

PATIENT
  Age: 45 Year
  Sex: Male

DRUGS (1)
  1. PROPECIA [Suspect]
     Active Substance: FINASTERIDE
     Indication: ANDROGENETIC ALOPECIA
     Dosage: 1 MG, QD
     Route: 048
     Dates: start: 2011, end: 20170118

REACTIONS (3)
  - Pulmonary embolism [Recovering/Resolving]
  - Thrombosis [Unknown]
  - Traumatic renal injury [Unknown]

NARRATIVE: CASE EVENT DATE: 20170115
